FAERS Safety Report 7407982-4 (Version None)
Quarter: 2011Q2

REPORT INFORMATION
  Report Type: 
  Country: None (occurrence: None)
  Receive Date: 20110412
  Receipt Date: 20110407
  Transmission Date: 20111010
  Serious: Yes (Other)
  Sender: FDA-Public Use
  Company Number: US-PFIZER INC-2011077343

PATIENT
  Age: 71 Year
  Sex: Female

DRUGS (1)
  1. TORISEL [Suspect]
     Indication: RENAL CANCER METASTATIC
     Dosage: UNK

REACTIONS (1)
  - PNEUMONIA [None]
